FAERS Safety Report 5292063-9 (Version None)
Quarter: 2007Q2

REPORT INFORMATION
  Report Type: 
  Country: None (occurrence: None)
  Receive Date: 20070406
  Receipt Date: 20070406
  Transmission Date: 20071010
  Serious: Yes (Hospitalization)
  Sender: FDA-Public Use
  Company Number: None

PATIENT
  Sex: Female
  Weight: 84 kg

DRUGS (10)
  1. CISPLATIN [Suspect]
     Dosage: 100 MG
  2. NAVELBINE [Suspect]
     Dosage: 60 MG
  3. DOS [Concomitant]
  4. FLEXERIL [Concomitant]
  5. IBUPROFEN [Concomitant]
  6. NEUPOGEN [Concomitant]
  7. PERCOSET [Concomitant]
  8. PHENERGAN HCL [Concomitant]
  9. PRENATAL VITAMINS [Concomitant]
  10. PROCRIT [Concomitant]

REACTIONS (2)
  - FEBRILE NEUTROPENIA [None]
  - PANCYTOPENIA [None]
